FAERS Safety Report 16598964 (Version 1)
Quarter: 2019Q3

REPORT INFORMATION
  Report Type: Spontaneous
  Country: US (occurrence: US)
  Receive Date: 20190719
  Receipt Date: 20190719
  Transmission Date: 20191004
  Serious: No
  Sender: FDA-Public Use
  Company Number: US-SA-2019SA192829

PATIENT
  Age: 9 Year
  Sex: Male

DRUGS (5)
  1. MMR [Concomitant]
     Active Substance: MEASLES-MUMPS-RUBELLA VIRUS VACCINE
     Indication: IMMUNISATION
     Dosage: UNK
     Route: 065
  2. TUBERSOL [Suspect]
     Active Substance: TUBERCULIN PURIFIED PROTEIN DERIVATIVE
     Indication: TUBERCULIN TEST
     Dosage: 1 ML
     Dates: start: 20190712, end: 20190712
  3. TETANUS TOXOID [Suspect]
     Active Substance: TETANUS TOXOIDS
     Indication: IMMUNISATION
     Route: 065
  4. HEPATITIS B [HEPATITIS B VACCINE] [Concomitant]
     Indication: IMMUNISATION
     Dosage: UNK
     Route: 065
  5. IPOL [POLIO VACCINE INACT 3V (VERO)] [Concomitant]
     Indication: IMMUNISATION

REACTIONS (3)
  - Overdose [Unknown]
  - Wrong product administered [Unknown]
  - Incorrect route of product administration [Unknown]
